FAERS Safety Report 9449605 (Version 1)
Quarter: 2013Q3

REPORT INFORMATION
  Report Type: Spontaneous
  Country: US (occurrence: US)
  Receive Date: 20130809
  Receipt Date: 20130809
  Transmission Date: 20140515
  Serious: No
  Sender: FDA-Public Use
  Company Number: US-PFIZER INC-2013229203

PATIENT
  Age: 67 Year
  Sex: Female

DRUGS (1)
  1. SUTENT [Suspect]
     Indication: SOFT TISSUE CANCER
     Dosage: 12.5 MG, UNK
     Dates: start: 20130529, end: 20130626

REACTIONS (3)
  - Off label use [Unknown]
  - Disease progression [Unknown]
  - Soft tissue cancer [Unknown]
